FAERS Safety Report 14472046 (Version 1)
Quarter: 2018Q1

REPORT INFORMATION
  Report Type: Spontaneous
  Country: US (occurrence: US)
  Receive Date: 20180131
  Receipt Date: 20180131
  Transmission Date: 20180509
  Serious: Yes (Hospitalization)
  Sender: FDA-Public Use
  Company Number: US-VIFOR (INTERNATIONAL) INC.-VIT-2018-01028

PATIENT
  Age: 65 Year
  Sex: Female

DRUGS (16)
  1. CIPRO [Concomitant]
     Active Substance: CIPROFLOXACIN HYDROCHLORIDE
  2. LISINOPRIL. [Concomitant]
     Active Substance: LISINOPRIL
  3. VITAMINS NOS [Concomitant]
     Active Substance: VITAMINS
  4. VELTASSA [Suspect]
     Active Substance: PATIROMER
     Indication: HYPERKALAEMIA
     Route: 048
     Dates: start: 20160805
  5. FLOVENT HFA [Concomitant]
     Active Substance: FLUTICASONE PROPIONATE
  6. AMLODIPINE BESILATE [Concomitant]
     Active Substance: AMLODIPINE BESYLATE
  7. ACETYLSALICYLIC ACID [Concomitant]
     Active Substance: ASPIRIN
  8. FAMOTIDINE. [Concomitant]
     Active Substance: FAMOTIDINE
  9. FERROUS SULFATE. [Concomitant]
     Active Substance: FERROUS SULFATE
  10. FLONASE [Concomitant]
     Active Substance: FLUTICASONE PROPIONATE
  11. LEVOTHYROXINE SODIUM. [Concomitant]
     Active Substance: LEVOTHYROXINE SODIUM
  12. HUMALOG [Concomitant]
     Active Substance: INSULIN LISPRO
  13. MYCOPHENOLATE MOFETIL. [Concomitant]
     Active Substance: MYCOPHENOLATE MOFETIL
  14. CLONIDINE HYDROCHLORIDE. [Concomitant]
     Active Substance: CLONIDINE HYDROCHLORIDE
  15. CURCUMIN 95 [Concomitant]
  16. LEVEMIR [Concomitant]
     Active Substance: INSULIN DETEMIR

REACTIONS (2)
  - Hip arthroplasty [Recovered/Resolved]
  - Drug dose omission [Unknown]

NARRATIVE: CASE EVENT DATE: 20180108
